FAERS Safety Report 16781849 (Version 1)
Quarter: 2019Q3

REPORT INFORMATION
  Report Type: Other
  Country: TN (occurrence: TN)
  Receive Date: 20190906
  Receipt Date: 20190906
  Transmission Date: 20191005
  Serious: Yes (Life-Threatening, Hospitalization)
  Sender: FDA-Public Use
  Company Number: TN-NOSTRUM LABORATORIES, INC.-2074111

PATIENT
  Age: 73 Year
  Sex: Male

DRUGS (1)
  1. THEOPHYLLINE EXTENDED RELEASE [Suspect]
     Active Substance: THEOPHYLLINE
     Indication: BRONCHITIS
     Route: 048

REACTIONS (2)
  - Ventricular arrhythmia [Recovered/Resolved]
  - Cardiac failure [Recovered/Resolved]
